FAERS Safety Report 7512700-5 (Version None)
Quarter: 2011Q2

REPORT INFORMATION
  Report Type: 
  Country: None (occurrence: None)
  Receive Date: 20110531
  Receipt Date: 20110517
  Transmission Date: 20111010
  Serious: Yes (Other)
  Sender: FDA-Public Use
  Company Number: US-JNJFOC-20110507902

PATIENT
  Sex: Female

DRUGS (1)
  1. REMICADE [Suspect]
     Indication: PSORIASIS
     Route: 042
     Dates: start: 20110501, end: 20110512

REACTIONS (4)
  - VOMITING [None]
  - SKIN DISCOLOURATION [None]
  - INFUSION RELATED REACTION [None]
  - MALAISE [None]
